FAERS Safety Report 5549075-7 (Version None)
Quarter: 2007Q4

REPORT INFORMATION
  Report Type: 
  Country: None (occurrence: None)
  Receive Date: 20071211
  Receipt Date: 20070413
  Transmission Date: 20080405
  Serious: No
  Sender: FDA-Public Use
  Company Number: US-AMGEN-KDL215133

PATIENT
  Sex: Female

DRUGS (12)
  1. ENBREL [Suspect]
     Indication: PSORIATIC ARTHROPATHY
     Route: 058
     Dates: start: 20060825
  2. METHOTREXATE [Concomitant]
     Route: 058
  3. TRANSDERM SCOP [Concomitant]
  4. LORAZEPAM [Concomitant]
     Route: 048
  5. MOBIC [Concomitant]
     Route: 048
  6. FOLIC ACID [Concomitant]
     Route: 048
  7. AMBIEN [Concomitant]
  8. KLOR-CON [Concomitant]
  9. LISINOPRIL [Concomitant]
     Route: 048
  10. HYDROCHLOROTHIAZIDE [Concomitant]
  11. FLONASE [Concomitant]
  12. CELEBREX [Concomitant]

REACTIONS (2)
  - HERPES ZOSTER [None]
  - STRESS AT WORK [None]
